FAERS Safety Report 19830185 (Version 1)
Quarter: 2021Q3

REPORT INFORMATION
  Report Type: Spontaneous
  Country: US (occurrence: US)
  Receive Date: 20210913
  Receipt Date: 20210913
  Transmission Date: 20211014
  Serious: Yes (Hospitalization)
  Sender: FDA-Public Use
  Company Number: None

PATIENT
  Age: 49 Year
  Sex: Male

DRUGS (1)
  1. TACROLIMUS 1MG CAP [Suspect]
     Active Substance: TACROLIMUS
     Indication: LIVER TRANSPLANT
     Route: 048
     Dates: start: 20171024

REACTIONS (3)
  - Liver transplant [None]
  - Therapy interrupted [None]
  - Colitis ulcerative [None]

NARRATIVE: CASE EVENT DATE: 20210908
